FAERS Safety Report 17981491 (Version 1)
Quarter: 2020Q3

REPORT INFORMATION
  Report Type: Spontaneous
  Country: FR (occurrence: FR)
  Receive Date: 20200706
  Receipt Date: 20200706
  Transmission Date: 20201103
  Serious: Yes (Other)
  Sender: FDA-Public Use
  Company Number: FR-TEVA-2020-FR-1795609

PATIENT
  Age: 61 Year
  Sex: Female
  Weight: 62 kg

DRUGS (1)
  1. PACLITAXEL. [Suspect]
     Active Substance: PACLITAXEL
     Indication: BREAST CANCER
     Dosage: 80 MG/M2
     Route: 042
     Dates: start: 20191210, end: 20200103

REACTIONS (5)
  - Agitation [Recovered/Resolved]
  - Back pain [Recovered/Resolved]
  - Product supply issue [Not Recovered/Not Resolved]
  - Headache [Recovered/Resolved]
  - Erythema [Recovered/Resolved]

NARRATIVE: CASE EVENT DATE: 201912
